FAERS Safety Report 5743273-5 (Version None)
Quarter: 2008Q2

REPORT INFORMATION
  Report Type: 
  Country: None (occurrence: None)
  Receive Date: 20080519
  Receipt Date: 20080507
  Transmission Date: 20081010
  Serious: Yes (Other)
  Sender: FDA-Public Use
  Company Number: US-PFIZER INC-2008040115

PATIENT
  Sex: Male

DRUGS (5)
  1. ZOLOFT [Suspect]
     Indication: DEPRESSION
  2. GEODON [Suspect]
     Indication: INSOMNIA
     Route: 048
     Dates: start: 20021201, end: 20080101
  3. GEODON [Suspect]
     Indication: SCHIZOAFFECTIVE DISORDER
  4. AMANTADINE HCL [Suspect]
  5. LITHOBID [Concomitant]

REACTIONS (11)
  - ABNORMAL DREAMS [None]
  - ANXIETY [None]
  - DEPRESSION [None]
  - DIARRHOEA [None]
  - FAECES HARD [None]
  - FEELING ABNORMAL [None]
  - HALLUCINATION [None]
  - HYPOGLYCAEMIA [None]
  - LYMPH NODE PAIN [None]
  - PHARMACEUTICAL PRODUCT COMPLAINT [None]
  - RESPIRATORY DISORDER [None]
